FAERS Safety Report 19810949 (Version 28)
Quarter: 2022Q3

REPORT INFORMATION
  Report Type: Report from Study
  Country: HU (occurrence: None)
  Receive Date: 20210909
  Receipt Date: 20220926
  Transmission Date: 20221027
  Serious: Yes (Hospitalization)
  Sender: FDA-Public Use
  Company Number: HU-EISAI MEDICAL RESEARCH-EC-2021-099158

PATIENT
  Age: 70 Year
  Sex: Male
  Weight: 73 kg

DRUGS (13)
  1. LENVATINIB [Suspect]
     Active Substance: LENVATINIB
     Indication: Clear cell renal cell carcinoma
     Route: 048
     Dates: start: 20210708, end: 20210901
  2. LENVATINIB [Suspect]
     Active Substance: LENVATINIB
     Route: 048
     Dates: start: 20210909, end: 20210929
  3. LENVATINIB [Suspect]
     Active Substance: LENVATINIB
     Route: 048
     Dates: start: 20211007
  4. QUAVONLIMAB [Suspect]
     Active Substance: QUAVONLIMAB
     Indication: Clear cell renal cell carcinoma
     Dosage: 425 MG (MK-1308 25 MG+ PEMBROLIZUMAB 400MG)
     Route: 042
     Dates: start: 20210708, end: 20210708
  5. PEMBROLIZUMAB [Suspect]
     Active Substance: PEMBROLIZUMAB
     Dosage: 425 MG (MK-1308 25 MG+ PEMBROLIZUMAB 400MG)
     Route: 042
     Dates: start: 20210819, end: 20210819
  6. TAMSULOSIN HYDROCHLORIDE [Concomitant]
     Active Substance: TAMSULOSIN HYDROCHLORIDE
     Dates: start: 200101
  7. PANCRELIPASE [Concomitant]
     Active Substance: PANCRELIPASE
     Dates: start: 201501
  8. MEFORAL [METFORMIN HYDROCHLORIDE] [Concomitant]
     Dates: start: 201501, end: 20211201
  9. CATAFLAM [Concomitant]
     Active Substance: DICLOFENAC POTASSIUM
     Dates: start: 20210722
  10. POTASSIUM CHLORIDE [Concomitant]
     Active Substance: POTASSIUM CHLORIDE
     Dates: start: 20210715
  11. FUROSEMIDE [Concomitant]
     Active Substance: FUROSEMIDE
     Dates: start: 20210805
  12. MERAMYL [Concomitant]
     Dates: start: 201601, end: 20220316
  13. BISOPROLOL [Concomitant]
     Active Substance: BISOPROLOL
     Dates: start: 201601, end: 20211220

REACTIONS (2)
  - Diabetes mellitus [Recovered/Resolved]
  - Hypertension [Recovered/Resolved]

NARRATIVE: CASE EVENT DATE: 20210826
